FAERS Safety Report 9692442 (Version 1)
Quarter: 2013Q4

REPORT INFORMATION
  Report Type: Spontaneous
  Country: US (occurrence: US)
  Receive Date: 20131118
  Receipt Date: 20131118
  Transmission Date: 20140711
  Serious: No
  Sender: FDA-Public Use
  Company Number: US-PFIZER INC-2013327417

PATIENT
  Age: 76 Year
  Sex: Female
  Weight: 80.73 kg

DRUGS (4)
  1. LYRICA [Suspect]
     Indication: DIABETIC NEUROPATHY
     Dosage: 75 MG, 3X/DAY
  2. LYRICA [Suspect]
     Dosage: 75 MG, DAILY
  3. METFORMIN [Concomitant]
     Indication: DIABETES MELLITUS
     Dosage: UNK, 3X/DAY
  4. DULOXETINE HYDROCHLORIDE [Concomitant]
     Dosage: UNK

REACTIONS (1)
  - Pain [Unknown]
